FAERS Safety Report 11826972 (Version 1)
Quarter: 2015Q4

REPORT INFORMATION
  Report Type: Spontaneous
  Country: US (occurrence: US)
  Receive Date: 20151211
  Receipt Date: 20151211
  Transmission Date: 20160305
  Serious: No
  Sender: FDA-Public Use
  Company Number: US-WATSON-2015-23874

PATIENT
  Sex: Female

DRUGS (1)
  1. TRIHEXYPHENIDYL HYDROCHLORIDE (WATSON LABORATORIES) [Suspect]
     Active Substance: TRIHEXYPHENIDYL HYDROCHLORIDE
     Indication: TREMOR
     Dosage: 5 MG, TID
     Route: 048

REACTIONS (3)
  - Drug interaction [Unknown]
  - Platelet count abnormal [Recovered/Resolved]
  - Limb discomfort [Recovered/Resolved]
